FAERS Safety Report 15726546 (Version 1)
Quarter: 2018Q4

REPORT INFORMATION
  Report Type: Spontaneous
  Country: US (occurrence: US)
  Receive Date: 20181217
  Receipt Date: 20181217
  Transmission Date: 20190205
  Serious: No
  Sender: FDA-Public Use
  Company Number: US-NOVOPROD-574676

PATIENT
  Sex: Male

DRUGS (1)
  1. LEVEMIR [Suspect]
     Active Substance: INSULIN DETEMIR
     Indication: DIABETES MELLITUS
     Dosage: 150 U IN THE MORNING AND 50 UNITS IN THE AFTERNOON
     Route: 058
     Dates: start: 2017

REACTIONS (3)
  - Nasopharyngitis [Unknown]
  - Blood glucose increased [Unknown]
  - Asthma [Unknown]

NARRATIVE: CASE EVENT DATE: 2017
